FAERS Safety Report 10428751 (Version 1)
Quarter: 2014Q3

REPORT INFORMATION
  Report Type: Spontaneous
  Country: CA (occurrence: CA)
  Receive Date: 20140903
  Receipt Date: 20140903
  Transmission Date: 20150326
  Serious: Yes (Hospitalization)
  Sender: FDA-Public Use
  Company Number: CA-AMGEN-CANSP2014066704

PATIENT
  Age: 84 Year
  Sex: Female

DRUGS (1)
  1. NEUPOGEN [Suspect]
     Active Substance: FILGRASTIM
     Indication: NEUTROPENIA
     Dosage: 1ML/300 MUG
     Route: 065
     Dates: start: 20140723

REACTIONS (8)
  - Pain [Unknown]
  - Hypertension [Unknown]
  - Nausea [Unknown]
  - Vomiting [Unknown]
  - Abdominal pain [Unknown]
  - Loss of consciousness [Unknown]
  - Memory impairment [Unknown]
  - Cough [Unknown]

NARRATIVE: CASE EVENT DATE: 2014
